FAERS Safety Report 8954485 (Version 1)
Quarter: 2012Q4

REPORT INFORMATION
  Report Type: 
  Country: US (occurrence: US)
  Receive Date: 20121207
  Receipt Date: 20121207
  Transmission Date: 20130627
  Serious: No
  Sender: FDA-Public Use
  Company Number: US-BAYER-2012-126729

PATIENT
  Age: 48 Year
  Sex: Female

DRUGS (1)
  1. CLIMARA PRO [Suspect]
     Dosage: UNK
     Route: 062
     Dates: start: 2010

REACTIONS (3)
  - Erythema [None]
  - Pruritus [None]
  - Contusion [None]
